FAERS Safety Report 8565092-7 (Version None)
Quarter: 2012Q3

REPORT INFORMATION
  Report Type: 
  Country: None (occurrence: None)
  Receive Date: 20120803
  Receipt Date: 20120726
  Transmission Date: 20120928
  Serious: Yes (Hospitalization)
  Sender: FDA-Public Use
  Company Number: IN-GLAXOSMITHKLINE-Z0008658E

PATIENT
  Sex: Male
  Weight: 62 kg

DRUGS (4)
  1. CEFTAZIDIME [Concomitant]
     Indication: FEBRILE NEUTROPENIA
     Dosage: 500MG TWICE PER DAY
     Route: 048
     Dates: start: 20111112, end: 20111116
  2. OFATUMUMAB [Suspect]
     Indication: CHRONIC LYMPHOCYTIC LEUKAEMIA
     Route: 042
     Dates: start: 20110324
  3. CLOTRIMAZOLE [Concomitant]
     Indication: FEBRILE NEUTROPENIA
     Dosage: 10MG THREE TIMES PER DAY
     Route: 048
     Dates: start: 20111112, end: 20111116
  4. CHLORAMBUCIL [Suspect]
     Indication: CHRONIC LYMPHOCYTIC LEUKAEMIA
     Route: 048
     Dates: start: 20110324

REACTIONS (1)
  - FEBRILE NEUTROPENIA [None]
